FAERS Safety Report 5006981-X (Version None)
Quarter: 2006Q2

REPORT INFORMATION
  Report Type: 
  Country: None (occurrence: None)
  Receive Date: 20060516
  Receipt Date: 20060428
  Transmission Date: 20061013
  Serious: Yes (Other)
  Sender: FDA-Public Use
  Company Number: GB200605000391

PATIENT
  Age: 46 Year
  Sex: Female

DRUGS (10)
  1. HUMULIN 70/30 [Suspect]
     Indication: DIABETES MELLITUS
     Dosage: SEE IMAGE
     Route: 065
     Dates: start: 20030101
  2. HP ERGO, TEAL/CLEAR (HUMAPEN ERGO, TEAL/CLEAR) [Concomitant]
  3. PREDNISOLONE [Concomitant]
  4. CALCIDOL (VITAMINS NOS) [Concomitant]
  5. FRUMIL (AMILORIDE HYDROCHLORIDE, FUROSEMIDE) [Concomitant]
  6. OXYBUTYNIN CHLORIDE [Concomitant]
  7. FOLIC ACID [Concomitant]
  8. CIPRAMIL (CITALOPRAM HYDROBROMIDE) [Concomitant]
  9. ASPIRIN [Concomitant]
  10. CALCICHEW (CALCIUM CARBONATE) [Concomitant]

REACTIONS (4)
  - DEVICE FAILURE [None]
  - PHARMACEUTICAL PRODUCT COMPLAINT [None]
  - RENAL FAILURE [None]
  - SOMNOLENCE [None]
